FAERS Safety Report 17911537 (Version 1)
Quarter: 2020Q2

REPORT INFORMATION
  Report Type: Spontaneous
  Country: US (occurrence: US)
  Receive Date: 20200617
  Receipt Date: 20200617
  Transmission Date: 20200714
  Serious: Yes (Hospitalization)
  Sender: FDA-Public Use
  Company Number: None

PATIENT
  Age: 54 Year
  Sex: Male
  Weight: 74.84 kg

DRUGS (2)
  1. RUXOLITINIB [Suspect]
     Active Substance: RUXOLITINIB
     Dates: start: 20200417, end: 20200610
  2. JAKAFI [Concomitant]
     Active Substance: RUXOLITINIB
     Dates: start: 20170421, end: 20200610

REACTIONS (2)
  - Therapy interrupted [None]
  - Spinal operation [None]

NARRATIVE: CASE EVENT DATE: 20200610
